FAERS Safety Report 8801727 (Version 1)
Quarter: 2012Q4

REPORT INFORMATION
  Report Type: 
  Country: CH (occurrence: CH)
  Receive Date: 20120921
  Receipt Date: 20120921
  Transmission Date: 20130627
  Serious: Yes (Hospitalization, Other)
  Sender: FDA-Public Use
  Company Number: CH-ELI_LILLY_AND_COMPANY-CH201209002867

PATIENT
  Age: 49 Year
  Sex: Male

DRUGS (2)
  1. FLUOXETINE HYDROCHLORIDE [Suspect]
     Indication: DEPRESSION
     Dosage: 20 mg, bid
     Route: 048
     Dates: start: 201204
  2. VALDOXAN [Concomitant]
     Indication: DEPRESSION
     Dosage: 25 mg, qd
     Route: 048
     Dates: start: 201204

REACTIONS (3)
  - Amnesia [Recovered/Resolved]
  - Disorientation [Unknown]
  - Feeling abnormal [Unknown]
